FAERS Safety Report 24683976 (Version 1)
Quarter: 2024Q4

REPORT INFORMATION
  Report Type: Spontaneous
  Country: US (occurrence: US)
  Receive Date: 20241202
  Receipt Date: 20241202
  Transmission Date: 20250114
  Serious: No
  Sender: ABBVIE
  Company Number: US-ABBVIE-6023479

PATIENT
  Sex: Female

DRUGS (1)
  1. MAVYRET [Suspect]
     Active Substance: GLECAPREVIR\PIBRENTASVIR
     Indication: Chronic hepatitis
     Dosage: TIME INTERVAL: 0.33333333 DAYS: STRENGTH 100 MG
     Route: 048
     Dates: start: 2024, end: 2024

REACTIONS (1)
  - Maternal exposure during pregnancy [Unknown]
